FAERS Safety Report 6824109-8 (Version None)
Quarter: 2010Q3

REPORT INFORMATION
  Report Type: 
  Country: None (occurrence: None)
  Receive Date: 20100708
  Receipt Date: 20061007
  Transmission Date: 20110219
  Serious: No
  Sender: FDA-Public Use
  Company Number: US-PFIZER INC-2006127288

PATIENT
  Sex: Female
  Weight: 59.87 kg

DRUGS (1)
  1. CHANTIX [Suspect]
     Dates: start: 20060101

REACTIONS (3)
  - CHROMATURIA [None]
  - MEDICATION ERROR [None]
  - THIRST [None]
